FAERS Safety Report 10577075 (Version 5)
Quarter: 2015Q3

REPORT INFORMATION
  Report Type: Report from Study
  Country: JP (occurrence: JP)
  Receive Date: 20141111
  Receipt Date: 20150727
  Transmission Date: 20151125
  Serious: No
  Sender: FDA-Public Use
  Company Number: JP-GLAXOSMITHKLINE-JP2014JPN006048

PATIENT
  Age: 72 Year
  Sex: Male

DRUGS (34)
  1. RESTAMIN [Concomitant]
     Active Substance: DIPHENHYDRAMINE
     Indication: PREMEDICATION
     Dosage: UNK MG, UNK
     Dates: start: 20140929, end: 20140929
  2. RESTAMIN [Concomitant]
     Active Substance: DIPHENHYDRAMINE
     Dosage: UNK MG, UNK
     Dates: start: 20141006, end: 20141006
  3. RESTAMIN [Concomitant]
     Active Substance: DIPHENHYDRAMINE
     Dosage: UNK MG, UNK
     Dates: start: 20141027, end: 20141027
  4. OFATUMUMAB [Suspect]
     Active Substance: OFATUMUMAB
     Dosage: 2000 MG, QD
     Route: 041
     Dates: start: 20141027, end: 20141027
  5. OFATUMUMAB [Suspect]
     Active Substance: OFATUMUMAB
     Dosage: 2000 MG, QD
     Route: 041
     Dates: start: 20150217, end: 20150217
  6. BRUFEN [Concomitant]
     Active Substance: IBUPROFEN
     Dosage: UNK MG, UNK
     Dates: start: 20141006, end: 20141006
  7. BRUFEN [Concomitant]
     Active Substance: IBUPROFEN
     Dosage: UNK MG, UNK
     Dates: start: 20141020, end: 20141020
  8. ALLELOCK [Concomitant]
     Active Substance: OLOPATADINE HYDROCHLORIDE
     Dosage: 5 MG, BID
     Dates: start: 20141001
  9. ACICLOVIR [Concomitant]
     Active Substance: ACYCLOVIR
     Indication: INFECTION PROPHYLAXIS
     Dosage: 200 MG, QD
     Dates: start: 20141001
  10. BAYASPIRIN [Concomitant]
     Active Substance: ASPIRIN
     Dosage: 100 MG, QD
     Dates: start: 20141001
  11. BAKTAR [Concomitant]
     Active Substance: SULFAMETHOXAZOLE\TRIMETHOPRIM
     Dosage: 1 DF, BID
     Dates: start: 20141001, end: 20141003
  12. OFATUMUMAB [Suspect]
     Active Substance: OFATUMUMAB
     Dosage: 2000 MG, QD
     Route: 041
     Dates: start: 20141006, end: 20141006
  13. OFATUMUMAB [Suspect]
     Active Substance: OFATUMUMAB
     Dosage: 2000 MG, QD
     Route: 041
     Dates: start: 20141014, end: 20141014
  14. RESTAMIN [Concomitant]
     Active Substance: DIPHENHYDRAMINE
     Dosage: UNK MG, UNK
     Dates: start: 20141020, end: 20141020
  15. RESTAMIN [Concomitant]
     Active Substance: DIPHENHYDRAMINE
     Dosage: UNK MG, UNK
     Dates: start: 20150217, end: 20150217
  16. NEXIUM [Concomitant]
     Active Substance: ESOMEPRAZOLE MAGNESIUM
     Dosage: 20 MG, QD
     Dates: start: 20140925
  17. OFATUMUMAB [Suspect]
     Active Substance: OFATUMUMAB
     Dosage: 2000 MG, QD
     Route: 041
     Dates: start: 20141208, end: 20141208
  18. POLYMIXIN B SULPHATE [Concomitant]
     Indication: INFECTION PROPHYLAXIS
     Dosage: 1 MILLION IU, TID
     Dates: start: 20141001
  19. OFATUMUMAB [Suspect]
     Active Substance: OFATUMUMAB
     Indication: CHRONIC LYMPHOCYTIC LEUKAEMIA
     Dosage: 300 MG, QD
     Route: 041
     Dates: start: 20140929, end: 20140929
  20. BRUFEN [Concomitant]
     Active Substance: IBUPROFEN
     Indication: PREMEDICATION
     Dosage: UNK MG, UNK
     Dates: start: 20140929, end: 20140929
  21. BRUFEN [Concomitant]
     Active Substance: IBUPROFEN
     Dosage: UNK MG, UNK
     Dates: start: 20141208, end: 20141208
  22. MYSLEE [Concomitant]
     Active Substance: ZOLPIDEM TARTRATE
     Indication: INSOMNIA
     Dosage: 1 DF, PRN
     Dates: start: 20140925
  23. TRAZENTA [Concomitant]
     Active Substance: LINAGLIPTIN
     Dosage: 5 MG, QD
     Dates: start: 20141001
  24. OFATUMUMAB [Suspect]
     Active Substance: OFATUMUMAB
     Dosage: 2000 MG, QD
     Route: 041
     Dates: start: 20141020, end: 20141020
  25. RESTAMIN [Concomitant]
     Active Substance: DIPHENHYDRAMINE
     Dosage: UNK MG, UNK
     Dates: start: 20141014, end: 20141014
  26. RESTAMIN [Concomitant]
     Active Substance: DIPHENHYDRAMINE
     Dosage: UNK MG, UNK
     Dates: start: 20141208, end: 20141208
  27. SULFAMETHOXAZOLE + TETRYZOLINE HYDROCHLORIDE [Concomitant]
     Indication: INFECTION PROPHYLAXIS
     Dosage: UNK
  28. BRUFEN [Concomitant]
     Active Substance: IBUPROFEN
     Dosage: UNK MG, UNK
     Dates: start: 20150217, end: 20150217
  29. RESTAMIN [Concomitant]
     Active Substance: DIPHENHYDRAMINE
     Dosage: UNK MG, UNK
     Dates: start: 20141104, end: 20141104
  30. BRUFEN [Concomitant]
     Active Substance: IBUPROFEN
     Dosage: UNK MG, UNK
     Dates: start: 20141014, end: 20141014
  31. BRUFEN [Concomitant]
     Active Substance: IBUPROFEN
     Dosage: UNK MG, UNK
     Dates: start: 20141104, end: 20141104
  32. FEBURIC [Concomitant]
     Active Substance: FEBUXOSTAT
     Dosage: 20 MG, QD
     Dates: start: 20140929
  33. OFATUMUMAB [Suspect]
     Active Substance: OFATUMUMAB
     Dosage: 2000 MG, QD
     Route: 041
     Dates: start: 20141104, end: 20141104
  34. BRUFEN [Concomitant]
     Active Substance: IBUPROFEN
     Dosage: UNK MG, UNK
     Dates: start: 20141027, end: 20141027

REACTIONS (2)
  - Dyspnoea [Recovered/Resolved]
  - Hypotension [Recovered/Resolved]

NARRATIVE: CASE EVENT DATE: 20141006
